FAERS Safety Report 19200767 (Version 8)
Quarter: 2025Q2

REPORT INFORMATION
  Report Type: Report from Study
  Country: US (occurrence: US)
  Receive Date: 20210430
  Receipt Date: 20250408
  Transmission Date: 20250716
  Serious: Yes (Hospitalization, Other)
  Sender: TAKEDA
  Company Number: US-SHIRE-US201941282AA

PATIENT
  Age: 54 Year
  Sex: Female
  Weight: 117 kg

DRUGS (30)
  1. HUMAN IMMUNOGLOBULIN G [Suspect]
     Active Substance: HUMAN IMMUNOGLOBULIN G
     Indication: Primary immunodeficiency syndrome
     Dosage: 55 GRAM, Q2WEEKS
     Dates: start: 20160322
  2. HUMAN IMMUNOGLOBULIN G [Suspect]
     Active Substance: HUMAN IMMUNOGLOBULIN G
     Indication: Stiff person syndrome
     Dosage: 65 GRAM, 1/WEEK
     Dates: start: 20160323
  3. HUMAN IMMUNOGLOBULIN G [Suspect]
     Active Substance: HUMAN IMMUNOGLOBULIN G
     Indication: Immunodeficiency common variable
     Dosage: 60 GRAM, Q2WEEKS
  4. HUMAN IMMUNOGLOBULIN G [Suspect]
     Active Substance: HUMAN IMMUNOGLOBULIN G
     Dosage: 65 GRAM, 1/WEEK
  5. HUMAN IMMUNOGLOBULIN G [Suspect]
     Active Substance: HUMAN IMMUNOGLOBULIN G
  6. ORENCIA [Concomitant]
     Active Substance: ABATACEPT
  7. XANAX [Concomitant]
     Active Substance: ALPRAZOLAM
  8. NEURONTIN [Concomitant]
     Active Substance: GABAPENTIN
  9. ATENOLOL [Concomitant]
     Active Substance: ATENOLOL
  10. NORTRIPTYLINE [Concomitant]
     Active Substance: NORTRIPTYLINE
  11. ASPIRIN [Concomitant]
     Active Substance: ASPIRIN
  12. ZANTAC [Concomitant]
     Active Substance: RANITIDINE HYDROCHLORIDE
  13. VALTREX [Concomitant]
     Active Substance: VALACYCLOVIR HYDROCHLORIDE
  14. TOPAMAX [Concomitant]
     Active Substance: TOPIRAMATE
  15. CARTIA XT [Concomitant]
     Active Substance: DILTIAZEM HYDROCHLORIDE
  16. DEXILANT [Concomitant]
     Active Substance: DEXLANSOPRAZOLE
  17. SYNTHROID [Concomitant]
     Active Substance: LEVOTHYROXINE SODIUM
  18. RESTASIS [Concomitant]
     Active Substance: CYCLOSPORINE
  19. LIPITOR [Concomitant]
     Active Substance: ATORVASTATIN CALCIUM
  20. PERCOCET [Concomitant]
     Active Substance: ACETAMINOPHEN\OXYCODONE HYDROCHLORIDE
  21. ACETAMINOPHEN [Concomitant]
     Active Substance: ACETAMINOPHEN
  22. DIPHENHYDRAMINE [Concomitant]
     Active Substance: DIPHENHYDRAMINE
  23. HEPARIN [Concomitant]
     Active Substance: HEPARIN SODIUM
  24. SODIUM CHLORIDE [Concomitant]
     Active Substance: SODIUM CHLORIDE
  25. EPINEPHRINE [Concomitant]
     Active Substance: EPINEPHRINE
  26. TEGRETOL [Concomitant]
     Active Substance: CARBAMAZEPINE
  27. PRAZOSIN [Concomitant]
     Active Substance: PRAZOSIN
  28. DILTIAZEM [Concomitant]
     Active Substance: DILTIAZEM
  29. SODIUM CHLORIDE [Concomitant]
     Active Substance: SODIUM CHLORIDE
  30. MIRAPEX [Concomitant]
     Active Substance: PRAMIPEXOLE DIHYDROCHLORIDE

REACTIONS (17)
  - Rheumatoid arthritis [Unknown]
  - Sepsis [Unknown]
  - Cellulitis [Unknown]
  - Staphylococcal infection [Unknown]
  - Stiff person syndrome [Unknown]
  - Haematological infection [Unknown]
  - Infection [Unknown]
  - Loss of consciousness [Unknown]
  - Tachycardia [Unknown]
  - Insurance issue [Unknown]
  - Product use issue [Unknown]
  - Illness [Unknown]
  - Bladder disorder [Unknown]
  - Nervous system disorder [Unknown]
  - Sinus disorder [Unknown]
  - Product dose omission issue [Unknown]
  - Malaise [Not Recovered/Not Resolved]

NARRATIVE: CASE EVENT DATE: 20240508
